FAERS Safety Report 11434040 (Version 1)
Quarter: 2015Q3

REPORT INFORMATION
  Report Type: Spontaneous
  Country: US (occurrence: None)
  Receive Date: 20150828
  Receipt Date: 20150828
  Transmission Date: 20151125
  Serious: No
  Sender: FDA-Public Use
  Company Number: None

PATIENT
  Age: 50 Year
  Sex: Male

DRUGS (11)
  1. AMPYRA [Suspect]
     Active Substance: DALFAMPRIDINE
     Indication: MULTIPLE SCLEROSIS
     Route: 048
     Dates: start: 201207
  2. OMEPRAZOLE. [Concomitant]
     Active Substance: OMEPRAZOLE
  3. ONDANSETRON [Suspect]
     Active Substance: ONDANSETRON
  4. OXYCODONE [Concomitant]
     Active Substance: OXYCODONE
  5. BACLOFEN. [Concomitant]
     Active Substance: BACLOFEN
  6. TERBINAFINE. [Concomitant]
     Active Substance: TERBINAFINE
  7. IBUPROFEN. [Concomitant]
     Active Substance: IBUPROFEN
  8. TECFIDERA [Concomitant]
     Active Substance: DIMETHYL FUMARATE
  9. DIAZEPAM. [Concomitant]
     Active Substance: DIAZEPAM
  10. ATORVASTATIN [Concomitant]
     Active Substance: ATORVASTATIN
  11. PAROXETINE [Suspect]
     Active Substance: PAROXETINE\PAROXETINE HYDROCHLORIDE

REACTIONS (1)
  - Laboratory test abnormal [None]

NARRATIVE: CASE EVENT DATE: 20150817
